FAERS Safety Report 9100939 (Version 1)
Quarter: 2013Q1

REPORT INFORMATION
  Report Type: Report from Study
  Country: US (occurrence: US)
  Receive Date: 20130215
  Receipt Date: 20130215
  Transmission Date: 20140127
  Serious: Yes (Death)
  Sender: FDA-Public Use
  Company Number: US-BAYER-2012-133007

PATIENT
  Age: 63 Year
  Sex: Male

DRUGS (1)
  1. SORAFENIB (RAF KINASE INHIBITOR) [Suspect]
     Indication: HEPATIC CANCER
     Dosage: 400 MG, DAILY
     Route: 048
     Dates: start: 20101019, end: 20121214

REACTIONS (3)
  - Bleeding varicose vein [Fatal]
  - Portal hypertension [Fatal]
  - Hepatocellular carcinoma [Fatal]
